FAERS Safety Report 17443140 (Version 1)
Quarter: 2020Q1

REPORT INFORMATION
  Report Type: Spontaneous
  Country: EC (occurrence: EC)
  Receive Date: 20200221
  Receipt Date: 20200221
  Transmission Date: 20200409
  Serious: Yes (Death, Other)
  Sender: FDA-Public Use
  Company Number: EC-AMGEN-ECUSP2020026936

PATIENT
  Age: 65 Year
  Sex: Male

DRUGS (3)
  1. NEULASTIM [Suspect]
     Active Substance: PEGFILGRASTIM
     Indication: MESOTHELIOMA
     Dosage: 6 MILLIGRAM, CYCLICAL
     Route: 058
     Dates: start: 20190607, end: 20190628
  2. PEMETREXED. [Concomitant]
     Active Substance: PEMETREXED
     Indication: MESOTHELIOMA
     Dosage: UNK
  3. PLATINUM [Concomitant]
     Active Substance: PLATINUM
     Indication: MESOTHELIOMA
     Dosage: UNK

REACTIONS (2)
  - Disease progression [Fatal]
  - Anaemia [Unknown]

NARRATIVE: CASE EVENT DATE: 201906
